FAERS Safety Report 20162368 (Version 2)
Quarter: 2021Q4

REPORT INFORMATION
  Report Type: Spontaneous
  Country: US (occurrence: US)
  Receive Date: 20211208
  Receipt Date: 20211214
  Transmission Date: 20220304
  Serious: Yes (Hospitalization)
  Sender: FDA-Public Use
  Company Number: US-ALLERGAN-2107399US

PATIENT
  Sex: Female

DRUGS (30)
  1. KETOROLAC [Suspect]
     Active Substance: KETOROLAC TROMETHAMINE
     Indication: Pain
  2. KETOROLAC [Suspect]
     Active Substance: KETOROLAC TROMETHAMINE
     Indication: Staphylococcal infection
  3. CEFTAROLINE FOSAMIL [Suspect]
     Active Substance: CEFTAROLINE FOSAMIL
     Indication: Pain
  4. CEFTAROLINE FOSAMIL [Suspect]
     Active Substance: CEFTAROLINE FOSAMIL
     Indication: Staphylococcal infection
  5. NORVASC [Suspect]
     Active Substance: AMLODIPINE BESYLATE
     Indication: Pain
  6. NORVASC [Suspect]
     Active Substance: AMLODIPINE BESYLATE
     Indication: Staphylococcal infection
  7. VICODIN [Suspect]
     Active Substance: ACETAMINOPHEN\HYDROCODONE BITARTRATE
     Indication: Pain
  8. VICODIN [Suspect]
     Active Substance: ACETAMINOPHEN\HYDROCODONE BITARTRATE
     Indication: Staphylococcal infection
  9. VANCOCIN [Suspect]
     Active Substance: VANCOMYCIN HYDROCHLORIDE
     Indication: Pain
  10. VANCOCIN [Suspect]
     Active Substance: VANCOMYCIN HYDROCHLORIDE
     Indication: Staphylococcal infection
  11. HYDRODIURIL [Suspect]
     Active Substance: HYDROCHLOROTHIAZIDE
     Indication: Pain
  12. HYDRODIURIL [Suspect]
     Active Substance: HYDROCHLOROTHIAZIDE
     Indication: Staphylococcal infection
  13. PRINIVIL [Suspect]
     Active Substance: LISINOPRIL
     Indication: Pain
  14. PRINIVIL [Suspect]
     Active Substance: LISINOPRIL
     Indication: Staphylococcal infection
  15. ZESTRIL [Suspect]
     Active Substance: LISINOPRIL
     Indication: Pain
  16. ZESTRIL [Suspect]
     Active Substance: LISINOPRIL
     Indication: Staphylococcal infection
  17. CEFTRIAXONE [Suspect]
     Active Substance: CEFTRIAXONE
     Indication: Pain
  18. CEFTRIAXONE [Suspect]
     Active Substance: CEFTRIAXONE
     Indication: Staphylococcal infection
  19. DAPTOMYCIN [Suspect]
     Active Substance: DAPTOMYCIN
     Indication: Pain
  20. DAPTOMYCIN [Suspect]
     Active Substance: DAPTOMYCIN
     Indication: Staphylococcal infection
  21. METHYLPREDNISOLONE [Suspect]
     Active Substance: METHYLPREDNISOLONE
     Indication: Pain
  22. METHYLPREDNISOLONE [Suspect]
     Active Substance: METHYLPREDNISOLONE
     Indication: Staphylococcal infection
  23. DOXYCYCLINE HYCLATE [Suspect]
     Active Substance: DOXYCYCLINE HYCLATE
     Indication: Pain
  24. DOXYCYCLINE HYCLATE [Suspect]
     Active Substance: DOXYCYCLINE HYCLATE
     Indication: Staphylococcal infection
  25. HYDROCODONE [Suspect]
     Active Substance: HYDROCODONE
     Indication: Pain
  26. HYDROCODONE [Suspect]
     Active Substance: HYDROCODONE
     Indication: Staphylococcal infection
  27. CUBICIN [Suspect]
     Active Substance: DAPTOMYCIN
     Indication: Pain
  28. CUBICIN [Suspect]
     Active Substance: DAPTOMYCIN
     Indication: Staphylococcal infection
  29. ACETAMINOPHEN [Suspect]
     Active Substance: ACETAMINOPHEN
     Indication: Pain
  30. ACETAMINOPHEN [Suspect]
     Active Substance: ACETAMINOPHEN
     Indication: Staphylococcal infection

REACTIONS (13)
  - Intervertebral discitis [Unknown]
  - Blood creatinine increased [Unknown]
  - Osteonecrosis [Unknown]
  - Spinal stenosis [Unknown]
  - Osteomyelitis acute [Unknown]
  - Back pain [Unknown]
  - Asymptomatic bacteriuria [Unknown]
  - Arteriosclerosis [Unknown]
  - Inflammatory marker increased [Unknown]
  - Tubulointerstitial nephritis [Unknown]
  - Atrophy [Unknown]
  - Fibrosis [Unknown]
  - Pyrexia [Unknown]
